FAERS Safety Report 6666774-4 (Version None)
Quarter: 2010Q1

REPORT INFORMATION
  Report Type: 
  Country: None (occurrence: None)
  Receive Date: 20100331
  Receipt Date: 20100318
  Transmission Date: 20100710
  Serious: Yes (Hospitalization)
  Sender: FDA-Public Use
  Company Number: 2010MB000019

PATIENT
  Age: 38 Year
  Sex: Male

DRUGS (1)
  1. MOXATAG [Suspect]
     Indication: NASOPHARYNGITIS

REACTIONS (5)
  - BONE MARROW FAILURE [None]
  - ESCHERICHIA INFECTION [None]
  - NEUTROPENIC COLITIS [None]
  - RECTAL TENESMUS [None]
  - SEPTIC SHOCK [None]
